FAERS Safety Report 5953093-4 (Version None)
Quarter: 2008Q4

REPORT INFORMATION
  Report Type: 
  Country: None (occurrence: None)
  Receive Date: 20081114
  Receipt Date: 20080605
  Transmission Date: 20090506
  Serious: No
  Sender: FDA-Public Use
  Company Number: US-BRISTOL-MYERS SQUIBB COMPANY-14217509

PATIENT
  Age: 67 Year
  Sex: Female
  Weight: 95 kg

DRUGS (4)
  1. GLUCOPHAGE XR [Suspect]
     Indication: TYPE 2 DIABETES MELLITUS
     Dates: start: 20080604
  2. GLUCOTROL XL [Concomitant]
  3. TENORETIC 100 [Concomitant]
  4. MULTI-VITAMINS [Concomitant]

REACTIONS (1)
  - DIARRHOEA [None]
